FAERS Safety Report 6711304-1 (Version None)
Quarter: 2010Q2

REPORT INFORMATION
  Report Type: 
  Country: None (occurrence: None)
  Receive Date: 20100505
  Receipt Date: 20100423
  Transmission Date: 20101027
  Serious: Yes (Other)
  Sender: FDA-Public Use
  Company Number: JP-PFIZER INC-2010053566

PATIENT
  Age: 66 Year
  Sex: Male

DRUGS (2)
  1. ZYVOX [Suspect]
     Indication: STAPHYLOCOCCAL SEPSIS
     Dosage: 1200 MG/DAY
     Route: 042
     Dates: start: 20100329, end: 20100411
  2. ZYVOX [Suspect]
     Dosage: 1200 MG/DAY
     Route: 048
     Dates: start: 20100412, end: 20100416

REACTIONS (1)
  - SUPRAVENTRICULAR TACHYCARDIA [None]
